FAERS Safety Report 11984891 (Version 1)
Quarter: 2016Q1

REPORT INFORMATION
  Report Type: Spontaneous
  Country: MX (occurrence: MX)
  Receive Date: 20160201
  Receipt Date: 20160201
  Transmission Date: 20160526
  Serious: Yes (Other)
  Sender: FDA-Public Use
  Company Number: MX-PFIZER INC-2016048771

PATIENT
  Age: 49 Year
  Sex: Male

DRUGS (7)
  1. SINTROM [Concomitant]
     Active Substance: ACENOCOUMAROL
     Indication: ANTICOAGULANT THERAPY
     Dosage: 1 UG, ALTERNATE DAY
     Route: 048
     Dates: start: 201408
  2. EUTIROX [Concomitant]
     Active Substance: LEVOTHYROXINE SODIUM
     Indication: THYROID DISORDER
     Dosage: 75 UG, UNK
     Route: 048
     Dates: start: 2011
  3. LIPITOR [Suspect]
     Active Substance: ATORVASTATIN CALCIUM
     Dosage: 20 MG, UNK
     Dates: start: 201408
  4. ALDACTONE [Suspect]
     Active Substance: SPIRONOLACTONE
     Dosage: 25 MG, UNK
     Dates: start: 20150920, end: 20160115
  5. NEXIUM [Concomitant]
     Active Substance: ESOMEPRAZOLE MAGNESIUM
     Indication: GASTRITIS PROPHYLAXIS
     Dosage: 40 MG, UNK
     Route: 048
     Dates: start: 20151104
  6. LANOXIN [Concomitant]
     Active Substance: DIGOXIN
     Dosage: 0.25 MG, UNK
     Route: 048
     Dates: start: 20151104
  7. DILATREND [Concomitant]
     Active Substance: CARVEDILOL
     Dosage: 25 MG, UNK
     Route: 048
     Dates: start: 20151104

REACTIONS (3)
  - Nipple swelling [Unknown]
  - Aortic valve disease [Recovering/Resolving]
  - Nipple pain [Unknown]

NARRATIVE: CASE EVENT DATE: 20151102
